FAERS Safety Report 6168835-5 (Version None)
Quarter: 2009Q2

REPORT INFORMATION
  Report Type: 
  Country: None (occurrence: None)
  Receive Date: 20090424
  Receipt Date: 20090424
  Transmission Date: 20091009
  Serious: Yes (Hospitalization)
  Sender: FDA-Public Use
  Company Number: None

PATIENT
  Sex: Female
  Weight: 82.5547 kg

DRUGS (6)
  1. PIOGLITAZONE [Suspect]
     Indication: DIABETES MELLITUS
     Dosage: 45 MG. P.O Q.D
     Route: 048
     Dates: start: 20081027, end: 20090414
  2. LOVASTATIN [Concomitant]
  3. LIBRIUM [Concomitant]
  4. BENTYL [Concomitant]
  5. ENALAPRIL [Concomitant]
  6. HIDROLOROTHIAZIDE [Concomitant]

REACTIONS (4)
  - CHEST PAIN [None]
  - HYPOAESTHESIA [None]
  - PARAESTHESIA [None]
  - TRANSIENT ISCHAEMIC ATTACK [None]
